FAERS Safety Report 7426479-9 (Version None)
Quarter: 2011Q2

REPORT INFORMATION
  Report Type: 
  Country: None (occurrence: None)
  Receive Date: 20110420
  Receipt Date: 20110218
  Transmission Date: 20111010
  Serious: Yes (Hospitalization, Other)
  Sender: FDA-Public Use
  Company Number: PHHY2011CN03990

PATIENT
  Age: 41 Year
  Sex: Male

DRUGS (2)
  1. SEBIVO [Suspect]
     Indication: HEPATITIS B
     Dosage: 600 MG, QD
     Route: 048
     Dates: start: 20091001, end: 20110108
  2. ANTIVIRALS NOS [Concomitant]
     Indication: HEPATITIS B

REACTIONS (8)
  - ASPARTATE AMINOTRANSFERASE INCREASED [None]
  - MARASMUS [None]
  - ASTHENIA [None]
  - HEPATITIS B DNA INCREASED [None]
  - BLOOD CREATINE PHOSPHOKINASE INCREASED [None]
  - ALANINE AMINOTRANSFERASE INCREASED [None]
  - MYALGIA [None]
  - HYPERSENSITIVITY [None]
